FAERS Safety Report 7497683-9 (Version None)
Quarter: 2011Q2

REPORT INFORMATION
  Report Type: 
  Country: None (occurrence: None)
  Receive Date: 20110523
  Receipt Date: 20110520
  Transmission Date: 20111010
  Serious: Yes (Other)
  Sender: FDA-Public Use
  Company Number: US-ALLERGAN-1101511US

PATIENT
  Sex: Female

DRUGS (6)
  1. MIRALAX [Concomitant]
     Indication: CONSTIPATION
  2. BOTOX COSMETIC [Suspect]
     Indication: SKIN WRINKLING
     Dosage: UNK
     Dates: start: 20110120, end: 20110120
  3. LISINOPRIL [Concomitant]
     Indication: HYPERTENSION
     Dosage: UNK
  4. HERBAL LAXATIVE [Concomitant]
     Indication: PRODUCT USED FOR UNKNOWN INDICATION
  5. ROCEPHIN IM. [Concomitant]
     Indication: SINUSITIS
     Dosage: UNK
     Route: 030
     Dates: start: 20110112, end: 20110112
  6. AMITIZA [Concomitant]
     Indication: PRODUCT USED FOR UNKNOWN INDICATION

REACTIONS (3)
  - DYSPHAGIA [None]
  - URTICARIA [None]
  - THROAT TIGHTNESS [None]
